FAERS Safety Report 8815226 (Version 3)
Quarter: 2012Q4

REPORT INFORMATION
  Report Type: Report from Study
  Country: AT (occurrence: AT)
  Receive Date: 20120928
  Receipt Date: 20121121
  Transmission Date: 20130627
  Serious: Yes (Hospitalization, Other)
  Sender: FDA-Public Use
  Company Number: AT-ABBOTT-12P-009-0983859-00

PATIENT
  Age: 38 Year
  Sex: Male
  Weight: 75 kg

DRUGS (11)
  1. HUMIRA [Suspect]
     Indication: CROHN^S DISEASE
     Dosage: Baseline
     Route: 058
     Dates: start: 20081201, end: 20081201
  2. HUMIRA [Suspect]
     Dosage: Week 2
     Route: 058
  3. HUMIRA [Suspect]
     Route: 058
     Dates: end: 20120717
  4. PANTOPRAZOLE SODIUM SESQUIHYDRATE [Concomitant]
     Indication: PROPHYLAXIS
     Dates: start: 2005
  5. PANTOPRAZOLE SODIUM SESQUIHYDRATE [Concomitant]
     Indication: GASTRIC DISORDER
  6. OMEPRAZOLE [Concomitant]
     Indication: GASTROOESOPHAGEAL REFLUX DISEASE
     Dates: start: 2005
  7. BUSCOPAN COMP. [Concomitant]
     Indication: ABDOMINAL PAIN
     Dates: start: 20090316
  8. ALENDRONATE SODIUM [Concomitant]
     Indication: OSTEOPOROSIS
     Dates: start: 20040305
  9. FOLIC ACID [Concomitant]
     Indication: VITAMIN SUPPLEMENTATION
     Dates: start: 20040522
  10. ENOXAPARIN SODIUM [Concomitant]
     Indication: DEEP VEIN THROMBOSIS
     Dates: start: 20120322
  11. 6-MP [Concomitant]
     Indication: CROHN^S DISEASE

REACTIONS (2)
  - Small intestine adenocarcinoma [Not Recovered/Not Resolved]
  - Ileus [Recovered/Resolved]
